FAERS Safety Report 9379955 (Version 1)
Quarter: 2013Q3

REPORT INFORMATION
  Report Type: Report from Study
  Country: US (occurrence: US)
  Receive Date: 20130702
  Receipt Date: 20130702
  Transmission Date: 20140515
  Serious: Yes (Hospitalization)
  Sender: FDA-Public Use
  Company Number: PHHO2013US008545

PATIENT
  Age: 41 Year
  Sex: Male
  Weight: 86 kg

DRUGS (7)
  1. LBH589 [Suspect]
     Indication: METASTATIC RENAL CELL CARCINOMA
     Dosage: 10 MG, TIW (FOR 2 WEEKS)
     Route: 048
     Dates: start: 20130506, end: 20130611
  2. AFINITOR [Suspect]
     Indication: METASTATIC RENAL CELL CARCINOMA
     Dosage: 5 MG, QD (X3 WEEKS)
     Route: 048
     Dates: start: 20130506, end: 20130613
  3. LEVOTHYROXINE [Concomitant]
     Dosage: 150 UG, QD
  4. VITAMIN D3 [Concomitant]
     Dosage: ONCE DAILY
  5. PROTONIX [Concomitant]
     Dosage: 40 MG, QD
  6. MORPHINE [Concomitant]
     Dosage: 30 MG, Q8H (PRN)
  7. SENNA [Concomitant]
     Dosage: 8.6 MG, BID

REACTIONS (1)
  - Muscular weakness [Recovered/Resolved]
